FAERS Safety Report 9264840 (Version 1)
Quarter: 2013Q2

REPORT INFORMATION
  Report Type: Spontaneous
  Country: BR (occurrence: BR)
  Receive Date: 20130501
  Receipt Date: 20130501
  Transmission Date: 20140414
  Serious: Yes (Other)
  Sender: FDA-Public Use
  Company Number: PHHY2013BR041803

PATIENT
  Sex: Male

DRUGS (1)
  1. RITALINA [Suspect]

REACTIONS (6)
  - Autism [Unknown]
  - Attention deficit/hyperactivity disorder [Unknown]
  - Feeling of despair [Unknown]
  - Psychomotor hyperactivity [Unknown]
  - Performance status decreased [Unknown]
  - Feeling abnormal [Unknown]
